FAERS Safety Report 4393226-7 (Version None)
Quarter: 2004Q3

REPORT INFORMATION
  Report Type: 
  Country: None (occurrence: None)
  Receive Date: 20040701
  Receipt Date: 20040616
  Transmission Date: 20050211
  Serious: Yes (Life-Threatening)
  Sender: FDA-Public Use
  Company Number: 2003AP03223

PATIENT
  Age: 61 Year
  Sex: Female

DRUGS (12)
  1. IRESSA [Suspect]
     Indication: LUNG ADENOCARCINOMA
     Dosage: 250 MG DAILY PO
     Route: 048
     Dates: start: 20020903, end: 20030513
  2. IRESSA [Suspect]
     Indication: LUNG ADENOCARCINOMA
     Dosage: 250 MG DAILY PO
     Route: 048
     Dates: start: 20030514, end: 20030527
  3. IRESSA [Suspect]
     Indication: LUNG ADENOCARCINOMA
     Dosage: 250 MG DAILY PO
     Route: 048
     Dates: start: 20030528, end: 20030603
  4. IRESSA [Suspect]
     Indication: LUNG ADENOCARCINOMA
     Dosage: 250 MG DAILY PO
     Route: 048
     Dates: start: 20030604, end: 20030610
  5. IRESSA [Suspect]
     Indication: LUNG ADENOCARCINOMA
     Dosage: 250 MG DAILY PO
     Route: 048
     Dates: start: 20030611, end: 20030916
  6. ALTAT [Concomitant]
  7. PREDNISOLONE [Concomitant]
  8. LORCAM [Concomitant]
  9. VOLTAREN [Concomitant]
  10. RADIATION THERAPY [Concomitant]
  11. CISPLATIN [Concomitant]
  12. UFT [Concomitant]

REACTIONS (4)
  - HERPES ZOSTER [None]
  - LIVER DISORDER [None]
  - METASTASES TO CENTRAL NERVOUS SYSTEM [None]
  - REFUSAL OF TREATMENT BY PATIENT [None]
